FAERS Safety Report 10611422 (Version 3)
Quarter: 2015Q1

REPORT INFORMATION
  Report Type: Report from Study
  Country: US (occurrence: US)
  Receive Date: 20141126
  Receipt Date: 20150107
  Transmission Date: 20150720
  Serious: Yes (Hospitalization, Other)
  Sender: FDA-Public Use
  Company Number: US-BAYER-2014-162511

PATIENT
  Age: 44 Year
  Sex: Female
  Weight: 80.73 kg

DRUGS (16)
  1. FERROUS SULFATE [Concomitant]
     Active Substance: FERROUS SULFATE\FERROUS SULFATE, DRIED
  2. ONDANSETRON [Concomitant]
     Active Substance: ONDANSETRON
  3. FENTANYL. [Concomitant]
     Active Substance: FENTANYL
  4. MULTIVITAMINS [Concomitant]
     Active Substance: VITAMINS
  5. VITAMIN B COMPLEX [Concomitant]
     Active Substance: CYANOCOBALAMIN\DEXPANTHENOL\NIACINAMIDE\PYRIDOXINE HYDROCHLORIDE\RIBOFLAVIN 5^-PHOSPHATE SODIUM\THIAMINE HYDROCHLORIDE\VITAMIN B COMPLEX
  6. TYLENOL EXTRA STRENGTH [Concomitant]
     Active Substance: ACETAMINOPHEN
  7. STIVARGA [Suspect]
     Active Substance: REGORAFENIB
     Indication: COLON CANCER
     Dosage: 160 MG DAILY (40 MG 4 TABLETS DAILY)
     Route: 048
     Dates: start: 201410
  8. SENOKOT [Concomitant]
     Active Substance: SENNOSIDES
  9. LIDOCAINE/PRILOCAINE [LIDOCAINE,PRILOCAINE HYDROCHLORIDE] [Concomitant]
  10. IRON [Concomitant]
     Active Substance: IRON
  11. DOCUSATE SODIUM. [Concomitant]
     Active Substance: DOCUSATE SODIUM
  12. STIVARGA [Suspect]
     Active Substance: REGORAFENIB
     Indication: COLON CANCER
     Dosage: 160 MG, ONCE DAILY FOR 3 WEEKS ON, 1 WEEK OFF
     Route: 048
     Dates: start: 20141018
  13. STIVARGA [Suspect]
     Active Substance: REGORAFENIB
     Indication: COLON CANCER
     Dosage: 120 MG ONCE DAILY FOR 21 DAYS ON, 7 DAYS OFF
     Route: 048
     Dates: start: 2014
  14. FISH OIL [Concomitant]
     Active Substance: FISH OIL
  15. HYDROMORPHONE [Concomitant]
     Active Substance: HYDROMORPHONE
  16. GLUMETZA [Concomitant]
     Active Substance: METFORMIN HYDROCHLORIDE

REACTIONS (17)
  - Dyspnoea [Unknown]
  - Abdominal pain [None]
  - Abasia [Unknown]
  - Musculoskeletal disorder [Unknown]
  - Feeding disorder [Unknown]
  - Hospitalisation [Unknown]
  - Colon cancer [None]
  - Palmar-plantar erythrodysaesthesia syndrome [Not Recovered/Not Resolved]
  - Vomiting [None]
  - Rash erythematous [Not Recovered/Not Resolved]
  - Failure to thrive [None]
  - Anaphylactic reaction [Unknown]
  - Rash maculo-papular [Recovering/Resolving]
  - Fatigue [Not Recovered/Not Resolved]
  - Nausea [None]
  - Weight decreased [Not Recovered/Not Resolved]
  - Decreased appetite [Not Recovered/Not Resolved]

NARRATIVE: CASE EVENT DATE: 2014
